FAERS Safety Report 8283572 (Version 2)
Quarter: 2012Q4

REPORT INFORMATION
  Report Type: Spontaneous
  Country: US (occurrence: None)
  Receive Date: 20111122
  Receipt Date: 20120426
  Transmission Date: 20130627
  Serious: No
  Sender: FDA-Public Use
  Company Number: PHHY2011US67746

PATIENT
  Age: 46 Year
  Sex: Female

DRUGS (2)
  1. GILENYA [Suspect]
     Indication: MULTIPLE SCLEROSIS
     Dosage: 0.5 MG, QD, ORAL
     Route: 048
     Dates: start: 20110415, end: 201107
  2. GILENYA [Suspect]
     Indication: MULTIPLE SCLEROSIS
     Dates: start: 201107, end: 201107

REACTIONS (2)
  - Weight increased [None]
  - Musculoskeletal stiffness [None]
